FAERS Safety Report 13872769 (Version 1)
Quarter: 2017Q3

REPORT INFORMATION
  Report Type: Spontaneous
  Country: FR (occurrence: FR)
  Receive Date: 20170816
  Receipt Date: 20170816
  Transmission Date: 20171127
  Serious: Yes (Hospitalization)
  Sender: FDA-Public Use
  Company Number: FR-EISAI MEDICAL RESEARCH-EC-2017-030129

PATIENT
  Age: 43 Year
  Sex: Female

DRUGS (3)
  1. PARIET [Suspect]
     Active Substance: RABEPRAZOLE SODIUM
     Indication: NECK PAIN
     Dosage: UNKNOWN
     Route: 048
     Dates: start: 20170515, end: 20170515
  2. MIOREL [Suspect]
     Active Substance: THIOCOLCHICOSIDE
     Indication: NECK PAIN
     Dosage: UNKNOWN
     Route: 048
     Dates: start: 20170515, end: 20170515
  3. NAPROXEN. [Suspect]
     Active Substance: NAPROXEN
     Indication: NECK PAIN
     Dosage: UNKNOWN
     Route: 048
     Dates: start: 20170515, end: 20170515

REACTIONS (1)
  - Drug hypersensitivity [Recovered/Resolved]

NARRATIVE: CASE EVENT DATE: 20170515
